FAERS Safety Report 25227818 (Version 1)
Quarter: 2025Q2

REPORT INFORMATION
  Report Type: Spontaneous
  Country: US (occurrence: US)
  Receive Date: 20250423
  Receipt Date: 20250423
  Transmission Date: 20250717
  Serious: Yes (Hospitalization)
  Sender: AUROBINDO
  Company Number: US-AUROBINDO-AUR-APL-2025-020406

PATIENT
  Age: 87 Year
  Sex: Female

DRUGS (8)
  1. POSACONAZOLE [Suspect]
     Active Substance: POSACONAZOLE
     Indication: Keratitis fungal
     Dosage: 300 MILLIGRAM, TWO TIMES A DAY
     Route: 065
  2. VORICONAZOLE [Suspect]
     Active Substance: VORICONAZOLE
     Indication: Keratitis fungal
     Route: 061
  3. AMPHOTERICIN B [Suspect]
     Active Substance: AMPHOTERICIN B
     Indication: Keratitis fungal
     Route: 065
  4. NATAMYCIN [Suspect]
     Active Substance: NATAMYCIN
     Indication: Keratitis fungal
     Route: 065
  5. BESIFLOXACIN [Concomitant]
     Active Substance: BESIFLOXACIN
     Indication: Eye pain
  6. BESIFLOXACIN [Concomitant]
     Active Substance: BESIFLOXACIN
     Indication: Lacrimation increased
  7. ERYTHROMYCIN [Concomitant]
     Active Substance: ERYTHROMYCIN
     Indication: Eye pain
  8. ERYTHROMYCIN [Concomitant]
     Active Substance: ERYTHROMYCIN
     Indication: Lacrimation increased

REACTIONS (2)
  - Hypertension [Unknown]
  - Drug ineffective [Unknown]
